FAERS Safety Report 11585000 (Version 4)
Quarter: 2015Q4

REPORT INFORMATION
  Report Type: Spontaneous
  Country: US (occurrence: US)
  Receive Date: 20151001
  Receipt Date: 20151109
  Transmission Date: 20160304
  Serious: Yes (Hospitalization, Other)
  Sender: FDA-Public Use
  Company Number: US-PFIZER INC-2015324182

PATIENT
  Age: 18 Year
  Sex: Male
  Weight: 57 kg

DRUGS (8)
  1. GENOTROPIN [Suspect]
     Active Substance: SOMATROPIN
     Dosage: UNK
  2. GENOTROPIN [Suspect]
     Active Substance: SOMATROPIN
     Indication: BLOOD GROWTH HORMONE ABNORMAL
     Dosage: 1.2 MG, UNK
     Route: 058
  3. FLUTICASONE PROPIONATE. [Concomitant]
     Active Substance: FLUTICASONE PROPIONATE
     Indication: HYPERSENSITIVITY
  4. OXYCONTIN/ACETAMINOPHEN [Concomitant]
     Indication: PAIN
     Dosage: 1 OR 2 TABLET, DAILY
     Route: 048
  5. ONDANSETRON ODT [Concomitant]
     Active Substance: ONDANSETRON
     Indication: NAUSEA
     Dosage: 4 MG, AS NEEDED (EVERY 8 HOURS)
  6. FLUTICASONE PROPIONATE. [Concomitant]
     Active Substance: FLUTICASONE PROPIONATE
     Indication: NASAL CONGESTION
     Dosage: UNK, 1X/DAY (EACH NIGHT)
  7. TAMSULOSIN [Concomitant]
     Active Substance: TAMSULOSIN
     Indication: NEPHROLITHIASIS
     Dosage: 0.4 MG, UNK
     Route: 048
  8. TYLENOL [Concomitant]
     Active Substance: ACETAMINOPHEN
     Dosage: 500MG 1 TABLET AS NEED AFTER 4 TO 6 HOURS IF NEEDS

REACTIONS (6)
  - Nausea [Unknown]
  - Back pain [Unknown]
  - Oropharyngeal pain [Unknown]
  - Nephrolithiasis [Not Recovered/Not Resolved]
  - Rhinorrhoea [Unknown]
  - Hypersensitivity [Unknown]
